FAERS Safety Report 17103918 (Version 10)
Quarter: 2025Q2

REPORT INFORMATION
  Report Type: Report from Study
  Country: US (occurrence: US)
  Receive Date: 20191203
  Receipt Date: 20250419
  Transmission Date: 20250717
  Serious: Yes (Other)
  Sender: TAKEDA
  Company Number: US-SHIRE-US201941490

PATIENT
  Age: 39 Year
  Sex: Female
  Weight: 54 kg

DRUGS (42)
  1. HUMAN IMMUNOGLOBULIN G [Suspect]
     Active Substance: HUMAN IMMUNOGLOBULIN G
     Indication: Chronic inflammatory demyelinating polyradiculoneuropathy
  2. HUMAN IMMUNOGLOBULIN G [Suspect]
     Active Substance: HUMAN IMMUNOGLOBULIN G
     Indication: IgG deficiency
     Dosage: 50 GRAM, Q3WEEKS
     Dates: start: 20150305
  3. HUMAN IMMUNOGLOBULIN G [Suspect]
     Active Substance: HUMAN IMMUNOGLOBULIN G
     Indication: Primary immunodeficiency syndrome
  4. DIPHENHYDRAMINE [Concomitant]
     Active Substance: DIPHENHYDRAMINE
  5. DIPHENHYDRAMINE HYDROCHLORIDE [Concomitant]
     Active Substance: DIPHENHYDRAMINE HYDROCHLORIDE
  6. DEXAMETHASONE [Concomitant]
     Active Substance: DEXAMETHASONE
  7. HEPARIN [Concomitant]
     Active Substance: HEPARIN SODIUM
  8. BUSPIRONE HCL [Concomitant]
     Active Substance: BUSPIRONE HYDROCHLORIDE
  9. EPINEPHRINE [Concomitant]
     Active Substance: EPINEPHRINE
  10. SODIUM CHLORIDE [Concomitant]
     Active Substance: SODIUM CHLORIDE
  11. ONDANSETRON HYDROCHLORIDE [Concomitant]
     Active Substance: ONDANSETRON HYDROCHLORIDE
  12. DICYCLOMINE HYDROCHLORIDE [Concomitant]
     Active Substance: DICYCLOMINE HYDROCHLORIDE
  13. NIACIN [Concomitant]
     Active Substance: NIACIN
  14. VITAMIN D3 [Concomitant]
     Active Substance: CHOLECALCIFEROL
  15. ANTI DIARRHEAL [Concomitant]
     Active Substance: LOPERAMIDE HYDROCHLORIDE
  16. ACETAMINOPHEN [Concomitant]
     Active Substance: ACETAMINOPHEN
  17. SYNTHROID [Concomitant]
     Active Substance: LEVOTHYROXINE SODIUM
  18. GUAIFENESIN AND DEXTROMETHORPHAN [Concomitant]
     Active Substance: DEXTROMETHORPHAN\GUAIFENESIN
  19. SODIUM CHLORIDE [Concomitant]
     Active Substance: SODIUM CHLORIDE
  20. MEDROL [Concomitant]
     Active Substance: METHYLPREDNISOLONE
  21. LORATADINE [Concomitant]
     Active Substance: LORATADINE
  22. URIBEL [Concomitant]
     Active Substance: HYOSCYAMINE SULFATE\METHENAMINE\METHYLENE BLUE\PHENYL SALICYLATE\SODIUM PHOSPHATE, MONOBASIC, MONOHY
  23. ESCITALOPRAM OXALATE [Concomitant]
     Active Substance: ESCITALOPRAM OXALATE
  24. LIDOCAINE [Concomitant]
     Active Substance: LIDOCAINE
  25. DEXTROSE [Concomitant]
     Active Substance: DEXTROSE MONOHYDRATE
  26. FAMOTIDINE [Concomitant]
     Active Substance: FAMOTIDINE
  27. FOLIC ACID [Concomitant]
     Active Substance: FOLIC ACID
  28. ACARBOSE [Concomitant]
     Active Substance: ACARBOSE
  29. PANTOPRAZOLE SODIUM [Concomitant]
     Active Substance: PANTOPRAZOLE SODIUM
  30. VITAMIN B [Concomitant]
     Active Substance: VITAMIN B
  31. OXYCODONE AND ACETAMINOPHEN [Concomitant]
     Active Substance: ACETAMINOPHEN\OXYCODONE HYDROCHLORIDE
  32. CYANOCOBALAMIN [Concomitant]
     Active Substance: CYANOCOBALAMIN
  33. DONNATAL [Concomitant]
     Active Substance: ATROPINE SULFATE\HYOSCYAMINE SULFATE\PHENOBARBITAL\SCOPOLAMINE HYDROBROMIDE
  34. ULTRAM [Concomitant]
     Active Substance: TRAMADOL HYDROCHLORIDE
  35. TRAMADOL HCL [Concomitant]
     Active Substance: TRAMADOL HYDROCHLORIDE
  36. STRATTERA [Concomitant]
     Active Substance: ATOMOXETINE HYDROCHLORIDE
  37. PRASTERONE [Concomitant]
     Active Substance: PRASTERONE
  38. ACETAMINOPHEN AND CODEINE [Concomitant]
     Active Substance: ACETAMINOPHEN\CODEINE PHOSPHATE
  39. FERRLECIT [Concomitant]
     Active Substance: SODIUM FERRIC GLUCONATE COMPLEX
  40. BUPROPION HYDROCHLORIDE [Concomitant]
     Active Substance: BUPROPION HYDROCHLORIDE
  41. GUAIFENESIN [Concomitant]
     Active Substance: GUAIFENESIN
  42. BUPRENORPHINE [Concomitant]
     Active Substance: BUPRENORPHINE

REACTIONS (29)
  - Crohn^s disease [Not Recovered/Not Resolved]
  - Sinus congestion [Unknown]
  - Illness [Unknown]
  - Dry skin [Unknown]
  - Skin exfoliation [Unknown]
  - Onychoclasis [Unknown]
  - Gastrointestinal infection [Unknown]
  - Insurance issue [Unknown]
  - Non-pitting oedema [Unknown]
  - Constipation [Not Recovered/Not Resolved]
  - Stress [Unknown]
  - Product availability issue [Unknown]
  - Post procedural constipation [Unknown]
  - Procedural nausea [Unknown]
  - Procedural vomiting [Unknown]
  - Product use in unapproved indication [Unknown]
  - Product use issue [Unknown]
  - Ligament sprain [Unknown]
  - Blood pressure decreased [Unknown]
  - Sensitive skin [Unknown]
  - Meniscus injury [Unknown]
  - Palpitations [Unknown]
  - Pain [Unknown]
  - Abdominal pain upper [Unknown]
  - Abdominal pain [Unknown]
  - Chills [Unknown]
  - Diarrhoea [Unknown]
  - Nausea [Not Recovered/Not Resolved]
  - Heart rate increased [Unknown]

NARRATIVE: CASE EVENT DATE: 20150303
